FAERS Safety Report 5827021-6 (Version None)
Quarter: 2008Q3

REPORT INFORMATION
  Report Type: 
  Country: None (occurrence: None)
  Receive Date: 20080724
  Receipt Date: 20080717
  Transmission Date: 20090109
  Serious: Yes (Life-Threatening)
  Sender: FDA-Public Use
  Company Number: 230045M08FRA

PATIENT
  Age: 55 Year
  Sex: Female

DRUGS (3)
  1. REBIF [Suspect]
     Indication: MULTIPLE SCLEROSIS
     Dosage: 44 MCG, 1 IN 1 WEEKS, SUBCUTANEOUS
     Route: 058
     Dates: start: 20020101, end: 20080418
  2. LERCANIDIPINE [Concomitant]
  3. HYZAAR [Concomitant]

REACTIONS (7)
  - BRAIN STEM ISCHAEMIA [None]
  - CARDIAC DISORDER [None]
  - COMA [None]
  - QUADRIPARESIS [None]
  - RENAL FAILURE ACUTE [None]
  - THROMBOTIC THROMBOCYTOPENIC PURPURA [None]
  - TROPONIN INCREASED [None]
